FAERS Safety Report 4358716-1 (Version None)
Quarter: 2004Q2

REPORT INFORMATION
  Report Type: 
  Country: None (occurrence: None)
  Receive Date: 20040517
  Receipt Date: 20030130
  Transmission Date: 20050107
  Serious: Yes (Other)
  Sender: FDA-Public Use
  Company Number: PHEH2003US01136

PATIENT
  Age: 47 Year
  Sex: Female

DRUGS (9)
  1. AREDIA [Suspect]
     Indication: BREAST CANCER
     Dosage: UNK/UNK
     Dates: start: 19980701
  2. CHEMOTHERAPEUTICS,OTHER [Concomitant]
  3. MS CONTIN [Concomitant]
  4. NEUROTON [Concomitant]
  5. XANAX [Concomitant]
  6. VICODIN ES [Concomitant]
     Indication: PAIN
     Dosage: 1 TABLET/PRN
  7. CELEBREX [Concomitant]
  8. CHONDROITIN A [Concomitant]
  9. MS CONTIN [Concomitant]

REACTIONS (9)
  - HEMIPARESIS [None]
  - INTRA-NASAL ANTROSTOMY [None]
  - ORAL PAIN [None]
  - OSTECTOMY [None]
  - OSTEOMYELITIS [None]
  - OSTEONECROSIS [None]
  - TOOTH DISORDER [None]
  - TOOTH EXTRACTION [None]
  - WOUND DEBRIDEMENT [None]
